FAERS Safety Report 17400409 (Version 1)
Quarter: 2020Q1

REPORT INFORMATION
  Report Type: Spontaneous
  Country: US (occurrence: US)
  Receive Date: 20200211
  Receipt Date: 20200211
  Transmission Date: 20200409
  Serious: No
  Sender: FDA-Public Use
  Company Number: US-TEVA-2020-US-1181494

PATIENT
  Sex: Female

DRUGS (1)
  1. COPAXONE [Suspect]
     Active Substance: GLATIRAMER ACETATE
     Dosage: FORM STRENGTH UNKNOWN
     Route: 065

REACTIONS (6)
  - Loss of personal independence in daily activities [Unknown]
  - Asthenia [Unknown]
  - Disease recurrence [Unknown]
  - Dizziness [Unknown]
  - Hypoaesthesia [Unknown]
  - Dysstasia [Unknown]
